FAERS Safety Report 20856061 (Version 4)
Quarter: 2022Q4

REPORT INFORMATION
  Report Type: Report from Study
  Country: ES (occurrence: ES)
  Receive Date: 20220520
  Receipt Date: 20221004
  Transmission Date: 20230112
  Serious: Yes (Hospitalization)
  Sender: FDA-Public Use
  Company Number: ES-JNJFOC-20220520257

PATIENT
  Age: 77 Year
  Sex: Female

DRUGS (12)
  1. AMIVANTAMAB [Suspect]
     Active Substance: AMIVANTAMAB
     Indication: Non-small cell lung cancer metastatic
     Route: 042
     Dates: start: 20210325, end: 20220530
  2. CARBOPLATIN [Concomitant]
     Active Substance: CARBOPLATIN
     Indication: Non-small cell lung cancer metastatic
     Route: 042
     Dates: start: 20210325, end: 20210527
  3. PEMETREXED [Concomitant]
     Active Substance: PEMETREXED
     Indication: Non-small cell lung cancer metastatic
     Dosage: ALSO REPORTED AS 135 ML
     Route: 042
     Dates: start: 20210325, end: 20220530
  4. FAMOTIDINE [Concomitant]
     Active Substance: FAMOTIDINE
     Indication: Gastrointestinal disorder therapy
     Route: 048
     Dates: start: 20210324
  5. HYALURONATE SODIUM\TREHALOSE [Concomitant]
     Active Substance: HYALURONATE SODIUM\TREHALOSE
     Indication: Xerophthalmia
     Dosage: ^1^ DOSAGE; DOSAGE UNIT NOT REPORTED
     Route: 047
     Dates: start: 20210531
  6. PROTEIN [Concomitant]
     Active Substance: PROTEIN
     Indication: Hypoalbuminaemia
     Dosage: ^1^ DOSAGE; DOSAGE UNIT NOT REPORTED
     Route: 048
     Dates: start: 20211222
  7. AMOXICILLIN/CLAVULANIC ACID [AMOXICILLIN SODIUM;CLAVULANATE POTASSIUM] [Concomitant]
     Indication: Paronychia
     Route: 048
     Dates: start: 20220426, end: 20220506
  8. EPLERENONE [Concomitant]
     Active Substance: EPLERENONE
     Indication: Hypertension
     Route: 048
  9. SIMVASTATIN [Concomitant]
     Active Substance: SIMVASTATIN
     Indication: Dyslipidaemia
     Route: 048
  10. UNSPECIFIED INGREDIENT [Concomitant]
     Active Substance: UNSPECIFIED INGREDIENT
     Indication: Conjunctivitis bacterial
     Route: 047
     Dates: start: 20220427, end: 20220509
  11. CIPROFLOXACIN [Concomitant]
     Active Substance: CIPROFLOXACIN
     Indication: Paronychia
     Route: 048
     Dates: start: 20220505, end: 20220509
  12. CLINDAMYCIN [Concomitant]
     Active Substance: CLINDAMYCIN
     Indication: Paronychia
     Route: 048
     Dates: start: 20220505, end: 20220509

REACTIONS (1)
  - Cellulitis [Recovering/Resolving]

NARRATIVE: CASE EVENT DATE: 20220509
